FAERS Safety Report 10627165 (Version 3)
Quarter: 2015Q1

REPORT INFORMATION
  Report Type: Spontaneous
  Country: US (occurrence: US)
  Receive Date: 20141204
  Receipt Date: 20150106
  Transmission Date: 20150720
  Serious: No
  Sender: FDA-Public Use
  Company Number: US-GLAXOSMITHKLINE-A0798826A

PATIENT
  Sex: Female
  Weight: 63.6 kg

DRUGS (16)
  1. SUMATRIPTAN SUCCINATE SOLUTION FOR INJECTION IN PRE-FILLED PEN [Suspect]
     Active Substance: SUMATRIPTAN SUCCINATE
     Dosage: UNK
  2. BOTOX INJECTION [Concomitant]
  3. ADVAIR DISKUS [Suspect]
     Active Substance: FLUTICASONE PROPIONATE\SALMETEROL XINAFOATE
     Indication: ASTHMA
     Dosage: UNK, U
  4. SUMATRIPTAN SUCCINATE SOLUTION FOR INJECTION IN PRE-FILLED PEN [Suspect]
     Active Substance: SUMATRIPTAN SUCCINATE
     Indication: MIGRAINE
     Dosage: 6 MG AS NEEDED PATIENT SAID SHE HAS MIGRAINES ABOUT EVERY DAY
     Route: 065
  5. SINGULAIR [Concomitant]
     Active Substance: MONTELUKAST SODIUM
  6. UNKNOWN [Concomitant]
     Active Substance: UNSPECIFIED INGREDIENT
  7. ALBUTEROL. [Concomitant]
     Active Substance: ALBUTEROL
  8. IMITREX [Suspect]
     Active Substance: SUMATRIPTAN\SUMATRIPTAN SUCCINATE
     Indication: MIGRAINE
     Route: 058
     Dates: start: 2006, end: 2007
  9. NAPROXIN [Concomitant]
     Active Substance: NAPROXEN
  10. LORATADINE + PSEUDOEPHEDRINE [Concomitant]
  11. SUMATRIPTAN SUCCINATE TABLET [Suspect]
     Active Substance: SUMATRIPTAN SUCCINATE
     Indication: MIGRAINE
     Route: 065
  12. SUMATRIPTAN SUCCINATE SOLUTION FOR INJECTION IN PRE-FILLED PEN [Suspect]
     Active Substance: SUMATRIPTAN SUCCINATE
     Dosage: UNK
  13. ALBUTEROL. [Concomitant]
     Active Substance: ALBUTEROL
  14. FIORICET [Concomitant]
     Active Substance: ACETAMINOPHEN\BUTALBITAL\CAFFEINE
  15. HYDROCODONE [Concomitant]
     Active Substance: HYDROCODONE
  16. IMITREX [Suspect]
     Active Substance: SUMATRIPTAN\SUMATRIPTAN SUCCINATE
     Indication: MIGRAINE
     Route: 048
     Dates: start: 2007

REACTIONS (5)
  - Drug administration error [Not Recovered/Not Resolved]
  - Fear of injection [Not Recovered/Not Resolved]
  - Drug ineffective [Not Recovered/Not Resolved]
  - Pain [Not Recovered/Not Resolved]
  - Product quality issue [Unknown]

NARRATIVE: CASE EVENT DATE: 2007
